FAERS Safety Report 13784476 (Version 2)
Quarter: 2017Q4

REPORT INFORMATION
  Report Type: Spontaneous
  Country: US (occurrence: US)
  Receive Date: 20170724
  Receipt Date: 20171024
  Transmission Date: 20180320
  Serious: No
  Sender: FDA-Public Use
  Company Number: US-IMPAX LABORATORIES, INC-2017-IPXL-01139

PATIENT
  Sex: Male
  Weight: 86 kg

DRUGS (5)
  1. RYTARY [Suspect]
     Active Substance: CARBIDOPA\LEVODOPA
     Indication: PARKINSON^S DISEASE
     Dosage: 23.75/95 MG, FOUR CAPSULES THREE TIMES DAILY
     Route: 048
     Dates: start: 2016
  2. GABAPENTIN. [Concomitant]
     Active Substance: GABAPENTIN
     Indication: SPINAL COLUMN STENOSIS
     Dosage: UNK
     Route: 065
  3. RYTARY [Suspect]
     Active Substance: CARBIDOPA\LEVODOPA
     Dosage: 3 CAPSULES EVERY THREE HOURS BETWEEN 6 AM AND 12 AM
     Route: 048
     Dates: start: 20170417
  4. RYTARY [Suspect]
     Active Substance: CARBIDOPA\LEVODOPA
     Dosage: 3 CAPSULES EVERY THREE HOURS BETWEEN 6 AM AND 12 AM
     Route: 048
     Dates: start: 201704
  5. RYTARY [Suspect]
     Active Substance: CARBIDOPA\LEVODOPA
     Dosage: 36.25/145MG- TAKE UP TO 4 TABLETS EVERY 3 HOURS, 7 TIMES A DAY
     Route: 048

REACTIONS (5)
  - Back pain [Not Recovered/Not Resolved]
  - Adverse event [Unknown]
  - Pain in extremity [Unknown]
  - Drug ineffective [Unknown]
  - Prescribed overdose [Unknown]
